FAERS Safety Report 20987355 (Version 1)
Quarter: 2022Q2

REPORT INFORMATION
  Report Type: Spontaneous
  Country: CN (occurrence: CN)
  Receive Date: 20220621
  Receipt Date: 20220621
  Transmission Date: 20220721
  Serious: Yes (Other)
  Sender: FDA-Public Use
  Company Number: CN-009507513-2206CHN004923

PATIENT
  Age: 72 Year
  Sex: Male

DRUGS (5)
  1. PEMBROLIZUMAB [Suspect]
     Active Substance: PEMBROLIZUMAB
     Indication: Adenocarcinoma gastric
     Dosage: 2 MG/KG, Q3W; DAY 2
     Dates: start: 202002, end: 202008
  2. BEVACIZUMAB [Suspect]
     Active Substance: BEVACIZUMAB
     Indication: Adenocarcinoma gastric
     Dosage: 7.5 MG/KG, Q3W; DAY 0
     Dates: start: 202002, end: 202006
  3. EPIRUBICIN [Concomitant]
     Active Substance: EPIRUBICIN
     Dosage: 90 MG/M2 (DAY 1), Q3W
     Dates: start: 202002, end: 2020
  4. EPIRUBICIN [Concomitant]
     Active Substance: EPIRUBICIN
     Dosage: 80 MG/M2 (DAY 1), Q3W
     Dates: start: 2020
  5. PACLITAXEL [Concomitant]
     Active Substance: PACLITAXEL
     Dosage: 260 MG/M2 (DAY1), Q3W
     Dates: start: 202002

REACTIONS (4)
  - Myelosuppression [Recovered/Resolved]
  - Agranulocytosis [Recovered/Resolved]
  - Pyrexia [Recovered/Resolved]
  - Off label use [Unknown]

NARRATIVE: CASE EVENT DATE: 20200101
